FAERS Safety Report 4705799-2 (Version None)
Quarter: 2005Q3

REPORT INFORMATION
  Report Type: 
  Country: None (occurrence: None)
  Receive Date: 20050701
  Receipt Date: 20050322
  Transmission Date: 20060218
  Serious: Yes (Hospitalization, Other)
  Sender: FDA-Public Use
  Company Number: US-MERCK-0503USA03878

PATIENT
  Age: 69 Year
  Sex: Female
  Weight: 55 kg

DRUGS (2)
  1. VIOXX [Suspect]
     Route: 048
     Dates: start: 19990501, end: 20021201
  2. NORVASC [Concomitant]
     Indication: HYPERTENSION
     Route: 065
     Dates: start: 19900101, end: 20050101

REACTIONS (26)
  - ACUTE MYOCARDIAL INFARCTION [None]
  - APPENDIX DISORDER [None]
  - ATRIAL FIBRILLATION [None]
  - ATRIOVENTRICULAR BLOCK FIRST DEGREE [None]
  - CARPAL TUNNEL DECOMPRESSION [None]
  - CATARACT [None]
  - COLITIS ISCHAEMIC [None]
  - CORONARY ARTERY DISEASE [None]
  - CORONARY ARTERY PERFORATION [None]
  - CORONARY ARTERY STENOSIS [None]
  - DRUG HYPERSENSITIVITY [None]
  - FIBROMUSCULAR DYSPLASIA [None]
  - GALLBLADDER DISORDER [None]
  - GASTROENTERITIS [None]
  - HYPERLIPIDAEMIA [None]
  - HYSTERECTOMY [None]
  - IRRITABLE BOWEL SYNDROME [None]
  - LEGIONELLA INFECTION [None]
  - PNEUMOPERITONEUM [None]
  - RENAL ARTERY FIBROMUSCULAR DYSPLASIA [None]
  - RENAL ARTERY STENOSIS [None]
  - RENOVASCULAR HYPERTENSION [None]
  - ROTATOR CUFF SYNDROME [None]
  - SMALL INTESTINAL OBSTRUCTION [None]
  - THYROID NEOPLASM [None]
  - VENTRICULAR EXTRASYSTOLES [None]
